FAERS Safety Report 23384670 (Version 3)
Quarter: 2024Q1

REPORT INFORMATION
  Report Type: Spontaneous
  Country: US (occurrence: US)
  Receive Date: 20240109
  Receipt Date: 20240207
  Transmission Date: 20240410
  Serious: No
  Sender: FDA-Public Use
  Company Number: US-PFIZER INC-PV202300167258

PATIENT
  Age: 65 Year
  Sex: Male
  Weight: 138 kg

DRUGS (4)
  1. BRAFTOVI [Suspect]
     Active Substance: ENCORAFENIB
     Indication: Malignant melanoma
     Dosage: 450 MG, 1X/DAY (TAKE 6 CAPS BY MOUTH ONCE A DAY)
     Route: 048
  2. BRAFTOVI [Suspect]
     Active Substance: ENCORAFENIB
     Dosage: TAKE 450 MG DAILY
     Route: 048
  3. MEKTOVI [Suspect]
     Active Substance: BINIMETINIB
     Indication: Malignant melanoma
     Dosage: 45 MG, 2X/DAY (TAKE 3 TABS BY MOUTH (45 MG) TWICE A DAY)
     Route: 048
  4. MEKTOVI [Suspect]
     Active Substance: BINIMETINIB
     Dosage: TAKE 2 TABLETS (30 MG TOTAL) BY MOUTH EVERY 12 (TWELVE) HOURS TWO IN AM
     Route: 048

REACTIONS (1)
  - Confusional state [Unknown]
